FAERS Safety Report 19904513 (Version 2)
Quarter: 2022Q1

REPORT INFORMATION
  Report Type: Spontaneous
  Country: FR (occurrence: FR)
  Receive Date: 20211001
  Receipt Date: 20220329
  Transmission Date: 20220423
  Serious: Yes (Hospitalization, Other)
  Sender: FDA-Public Use
  Company Number: FR-EMA-DD-20210915-ZAVIOUR_N-142711

PATIENT
  Age: 60 Year
  Sex: Male

DRUGS (32)
  1. GEMCITABINE [Suspect]
     Active Substance: GEMCITABINE
     Indication: Ductal adenocarcinoma of pancreas
     Dosage: 1000 MG/M2
     Route: 042
  2. GEMCITABINE [Suspect]
     Active Substance: GEMCITABINE
     Dosage: 800 MG/M2
     Route: 042
     Dates: start: 20200219
  3. GEMCITABINE [Suspect]
     Active Substance: GEMCITABINE
     Indication: Ductal adenocarcinoma of pancreas
     Dosage: UNK
     Route: 041
     Dates: start: 20200122, end: 20200129
  4. ABRAXANE [Suspect]
     Active Substance: PACLITAXEL
     Indication: Ductal adenocarcinoma of pancreas
     Dosage: 125 MG/M2
     Route: 042
     Dates: start: 20200122, end: 20200129
  5. ABRAXANE [Suspect]
     Active Substance: PACLITAXEL
     Dosage: 100 MG/M2
     Route: 042
     Dates: start: 20200119
  6. ASPARAGINASE [Suspect]
     Active Substance: ASPARAGINASE
     Indication: Ductal adenocarcinoma of pancreas
     Dosage: 100 MICROGRAM/KILOGRAM
     Route: 041
     Dates: start: 20200122, end: 20200122
  7. BEPANTHEN [Concomitant]
     Indication: Product used for unknown indication
     Dosage: 1 DF, QD
     Route: 065
     Dates: start: 20191022, end: 20200204
  8. PRIMPERAN [Concomitant]
     Active Substance: METOCLOPRAMIDE HYDROCHLORIDE
     Indication: Product used for unknown indication
     Dosage: 30 MILLIGRAM, DAILY (10 MG, TID)
     Route: 065
     Dates: start: 20200114, end: 20200204
  9. DAFALGAN [Concomitant]
     Active Substance: ACETAMINOPHEN
     Indication: Pain
     Dosage: 4000 MILLIGRAM, DAILY (1000 MG, QID)
     Route: 065
     Dates: start: 20200204
  10. LANSOPRAZOLE [Concomitant]
     Active Substance: LANSOPRAZOLE
     Indication: Gastrooesophageal reflux disease
     Dosage: UNK
     Route: 065
     Dates: start: 20200204
  11. LOVENOX [Concomitant]
     Active Substance: ENOXAPARIN SODIUM
     Indication: Thrombosis prophylaxis
     Dosage: 0.4 ML, QD
     Route: 058
     Dates: start: 20200211
  12. LANSOPRAZOLE [Concomitant]
     Active Substance: LANSOPRAZOLE
     Indication: Gastrooesophageal reflux disease
     Dosage: 30 MG, QD
     Route: 048
     Dates: start: 20200207
  13. DOLIPRANE [Concomitant]
     Active Substance: ACETAMINOPHEN
     Indication: Pain
     Dosage: 4 GRAM, DAILY (1 G, QID)
     Route: 065
     Dates: start: 20200114
  14. GAVISCON [Concomitant]
     Active Substance: ALUMINUM HYDROXIDE\MAGNESIUM CARBONATE
     Indication: Gastrooesophageal reflux disease
     Dosage: UNK, DAILY, AS NEEDED.
     Route: 065
     Dates: start: 20200204
  15. GAVISCON [Concomitant]
     Active Substance: ALUMINUM HYDROXIDE\MAGNESIUM CARBONATE
     Dosage: 10 ML, QD (AS NEEDED)
     Route: 048
     Dates: start: 20200204
  16. VENOFER [Concomitant]
     Active Substance: IRON SUCROSE
     Indication: Iron deficiency
     Dosage: 300 MG
     Route: 065
     Dates: start: 20200212
  17. IMODIUM [Concomitant]
     Active Substance: LOPERAMIDE HYDROCHLORIDE
     Indication: Product used for unknown indication
     Dosage: 6 DF, PRN (1-6 TABLETS)
     Route: 048
     Dates: start: 20200114, end: 20200204
  18. SPAGULAX [Concomitant]
     Active Substance: HERBALS\PLANTAGO OVATA SEED
     Indication: Product used for unknown indication
     Dosage: UNK, BID (1-0-1)
     Route: 065
     Dates: start: 20191022, end: 20200204
  19. OLIMEL [Concomitant]
     Active Substance: AMINO ACIDS\DEXTROSE\SOYBEAN OIL
     Indication: Product used for unknown indication
     Dosage: UNK
     Route: 065
     Dates: start: 20200206
  20. VASELINE PURE [Concomitant]
     Active Substance: PETROLATUM
     Indication: Anal fissure
     Dosage: UNK
     Route: 065
     Dates: start: 20200204
  21. SODIUM CHLORIDE [Concomitant]
     Active Substance: SODIUM CHLORIDE
     Indication: Gastrooesophageal reflux disease
     Dosage: 1000 ML, QD
     Route: 042
     Dates: start: 20200204
  22. SODIUM BICARBONATE [Concomitant]
     Active Substance: SODIUM BICARBONATE
     Indication: Gastrooesophageal reflux disease
     Dosage: UNK (3-6)
     Route: 065
     Dates: start: 20200114
  23. CREON [Concomitant]
     Active Substance: PANCRELIPASE AMYLASE\PANCRELIPASE LIPASE\PANCRELIPASE PROTEASE
     Indication: Pancreatic failure
     Dosage: 150000 INTERNATIONAL UNIT, DAILY (25000 IU, TID (2-2-2))
     Route: 048
     Dates: start: 20191105, end: 20200204
  24. CREON [Concomitant]
     Active Substance: PANCRELIPASE AMYLASE\PANCRELIPASE LIPASE\PANCRELIPASE PROTEASE
     Dosage: 9 CAPSULE
     Route: 048
  25. POLYETHYLENE GLYCOLS [Concomitant]
     Active Substance: POLYETHYLENE GLYCOLS
     Indication: Product used for unknown indication
     Dosage: 2 DF (11 IN 1D)
     Route: 065
     Dates: start: 20191022, end: 20200204
  26. EMEND [Concomitant]
     Active Substance: APREPITANT
     Indication: Product used for unknown indication
     Dosage: 125 MG (ONE DAY) (80 MG DAY 2 AND 3)
     Route: 065
     Dates: start: 20191122, end: 20200204
  27. EMEND [Concomitant]
     Active Substance: APREPITANT
     Dosage: 125 MG (ONE DAY) (80 MG DAY 2 AND 3)
     Route: 065
     Dates: start: 20200114, end: 20200204
  28. EMLA [Concomitant]
     Active Substance: LIDOCAINE\PRILOCAINE
     Indication: Product used for unknown indication
     Dosage: UNK
     Route: 065
     Dates: start: 20200114, end: 20200204
  29. PHLOROGLUCINOL [Concomitant]
     Active Substance: PHLOROGLUCINOL
     Indication: Pain
     Dosage: 480 MILLIGRAM, DAILY (160 MG, TID (AS NEEDED)
     Route: 065
     Dates: start: 20200204
  30. PHLOROGLUCINOL [Concomitant]
     Active Substance: PHLOROGLUCINOL
     Dosage: 80 MG, TID
     Route: 065
     Dates: start: 20200114
  31. ACUPAN [Concomitant]
     Active Substance: NEFOPAM HYDROCHLORIDE
     Indication: Pain
     Dosage: 80 MILLIGRAM, DAILY (20 MG, QID (AS NEEDED))
     Route: 065
     Dates: start: 20200204
  32. IRON\MINERALS\POTASSIUM IOD\SODIUM FLUORIDE\SODIUM MOLYBDATE\SODIUM SE [Concomitant]
     Active Substance: IRON\MINERALS\POTASSIUM IOD\SODIUM FLUORIDE\SODIUM MOLYBDATE\SODIUM SELENITE\ZINC
     Indication: Product used for unknown indication
     Dosage: UNK
     Route: 065
     Dates: start: 20200206

REACTIONS (2)
  - Bicytopenia [Recovered/Resolved]
  - Stomatitis [Recovered/Resolved]
